FAERS Safety Report 5417837-2 (Version None)
Quarter: 2007Q3

REPORT INFORMATION
  Report Type: 
  Country: None (occurrence: None)
  Receive Date: 20070817
  Receipt Date: 20070806
  Transmission Date: 20080115
  Serious: Yes (Other)
  Sender: FDA-Public Use
  Company Number: PHEH2007US10850

PATIENT
  Sex: Female

DRUGS (1)
  1. METOPIRONE [Suspect]
     Dosage: 250 MG, UNK
     Route: 048

REACTIONS (4)
  - BODY TEMPERATURE DECREASED [None]
  - HYPERHIDROSIS [None]
  - PALLOR [None]
  - SYNCOPE [None]
